FAERS Safety Report 10614367 (Version 1)
Quarter: 2014Q4

REPORT INFORMATION
  Report Type: Report from Study
  Country: BR (occurrence: BR)
  Receive Date: 20141128
  Receipt Date: 20141128
  Transmission Date: 20150529
  Serious: Yes (Other)
  Sender: FDA-Public Use
  Company Number: PHHY2014BR156042

PATIENT
  Sex: Female
  Weight: 58 kg

DRUGS (5)
  1. ACLASTA [Suspect]
     Active Substance: ZOLEDRONIC ACID
     Indication: OSTEOPOROSIS
     Dosage: 1 TIME PER YEAR
     Route: 042
     Dates: start: 2009
  2. ESCITALOPRAM [Concomitant]
     Active Substance: ESCITALOPRAM OXALATE
     Indication: DEPRESSION
     Dosage: 2 DF, QD
     Route: 065
  3. ENALAPRIL [Concomitant]
     Active Substance: ENALAPRIL
     Indication: BLOOD PRESSURE ABNORMAL
     Dosage: 2 DF, QD
     Route: 065
  4. VITAMIN D [Concomitant]
     Active Substance: CHOLECALCIFEROL
     Indication: SKIN DISORDER
     Dosage: 5 DRP, UNK
     Route: 065
  5. VICOG [Concomitant]
     Active Substance: VINPOCETINE
     Indication: BRAIN HYPOXIA
     Dosage: 2 DF, QD
     Route: 065

REACTIONS (3)
  - Femur fracture [Recovering/Resolving]
  - Tendon rupture [Recovering/Resolving]
  - Limb injury [Recovering/Resolving]
